FAERS Safety Report 6445689-0 (Version None)
Quarter: 2009Q4

REPORT INFORMATION
  Report Type: 
  Country: None (occurrence: None)
  Receive Date: 20091118
  Receipt Date: 20091118
  Transmission Date: 20100525
  Serious: No
  Sender: FDA-Public Use
  Company Number: None

PATIENT
  Age: 71 Year
  Sex: Male
  Weight: 102.9665 kg

DRUGS (1)
  1. CHLORHYDRATE 500MG PHARMACEUTICALASSOCITATES, INC [Suspect]
     Indication: SOMNOLENCE
     Dosage: 2 SPOONS AT BED
     Dates: start: 20090528, end: 20090610

REACTIONS (3)
  - DIARRHOEA [None]
  - INFLUENZA [None]
  - PRODUCT QUALITY ISSUE [None]
